FAERS Safety Report 9064081 (Version 2)
Quarter: 2014Q2

REPORT INFORMATION
  Report Type: Spontaneous
  Country: US (occurrence: US)
  Receive Date: 20130213
  Receipt Date: 20140429
  Transmission Date: 20141212
  Serious: Yes (Other)
  Sender: FDA-Public Use
  Company Number: US-ASTRAZENECA-2010SE48287

PATIENT
  Age: 81 Year
  Sex: Female
  Weight: 73.5 kg

DRUGS (3)
  1. ARIMIDEX [Suspect]
     Indication: BREAST CANCER
     Route: 048
     Dates: start: 201104
  2. TOPROL XL [Suspect]
     Indication: MYOCARDIAL INFARCTION
     Dosage: ONE AND A HALF TABLETS DAILY
     Route: 048
     Dates: start: 1999
  3. ALLOPURINOL [Concomitant]
     Indication: GOUT

REACTIONS (7)
  - Breast cancer female [Unknown]
  - Visual acuity reduced [Not Recovered/Not Resolved]
  - Fall [Unknown]
  - Alopecia [Unknown]
  - Body height decreased [Not Recovered/Not Resolved]
  - Drug dose omission [Not Recovered/Not Resolved]
  - Off label use [Not Recovered/Not Resolved]
